FAERS Safety Report 15858731 (Version 1)
Quarter: 2019Q1

REPORT INFORMATION
  Report Type: Spontaneous
  Country: US (occurrence: US)
  Receive Date: 20190123
  Receipt Date: 20190123
  Transmission Date: 20190417
  Serious: Yes (Disabling)
  Sender: FDA-Public Use
  Company Number: None

PATIENT
  Age: 60 Year
  Sex: Female
  Weight: 83.7 kg

DRUGS (12)
  1. VITAMIN E [Concomitant]
     Active Substance: .ALPHA.-TOCOPHEROL
  2. FOOT BOOT [Concomitant]
  3. CIPROFLOXACIN HCL 500 MG TABS [Suspect]
     Active Substance: CIPROFLOXACIN HYDROCHLORIDE
     Indication: DIVERTICULITIS
     Dosage: ?          QUANTITY:14 TABLET(S);?
     Route: 048
     Dates: start: 20181219, end: 20181226
  4. LOVASTATIN. [Concomitant]
     Active Substance: LOVASTATIN
  5. LOSARTAN. [Concomitant]
     Active Substance: LOSARTAN
  6. ATENOLOL. [Concomitant]
     Active Substance: ATENOLOL
  7. MELOXICAM. [Concomitant]
     Active Substance: MELOXICAM
  8. CALCIUM [Concomitant]
     Active Substance: CALCIUM
  9. VANCOMYCIN [Concomitant]
     Active Substance: VANCOMYCIN
  10. AMLODIPINE [Concomitant]
     Active Substance: AMLODIPINE BESYLATE
  11. NYSTATIN ORAL [Concomitant]
  12. VITAMIN K2 [Concomitant]
     Active Substance: MENAQUINONE 6

REACTIONS (4)
  - Tendonitis [None]
  - Performance status decreased [None]
  - Clostridium difficile infection [None]
  - Arthralgia [None]

NARRATIVE: CASE EVENT DATE: 20190108
